FAERS Safety Report 20416165 (Version 1)
Quarter: 2022Q1

REPORT INFORMATION
  Report Type: Spontaneous
  Country: US (occurrence: None)
  Receive Date: 20220201
  Receipt Date: 20220201
  Transmission Date: 20220423
  Serious: No
  Sender: FDA-Public Use
  Company Number: None

PATIENT
  Sex: Female

DRUGS (1)
  1. HUMIRA [Suspect]
     Active Substance: ADALIMUMAB
     Indication: Psoriasis
     Dosage: OTHER FREQUENCY : 40MG/0.4ML Q14DAYS;?
     Route: 057
     Dates: start: 20120101

REACTIONS (4)
  - Rash papular [None]
  - Rash pruritic [None]
  - Rash erythematous [None]
  - Drug eruption [None]
